FAERS Safety Report 5885850-7 (Version None)
Quarter: 2008Q3

REPORT INFORMATION
  Report Type: 
  Country: None (occurrence: None)
  Receive Date: 20080917
  Receipt Date: 20080910
  Transmission Date: 20090109
  Serious: Yes (Life-Threatening, Hospitalization)
  Sender: FDA-Public Use
  Company Number: FR-JNJFOC-20080902150

PATIENT
  Age: 82 Year
  Sex: Male

DRUGS (6)
  1. GALANTAMINE HYDROBROMIDE [Suspect]
     Indication: DEMENTIA
     Route: 048
  2. CORDARONE [Suspect]
     Indication: DRUG USE FOR UNKNOWN INDICATION
  3. ALLOPURINOL [Concomitant]
     Indication: DRUG USE FOR UNKNOWN INDICATION
  4. ZOXAN LP [Concomitant]
  5. INIPOMP [Concomitant]
  6. LEXOMIL [Concomitant]

REACTIONS (2)
  - ARRHYTHMIA [None]
  - HYPOKALAEMIA [None]
